FAERS Safety Report 5327388-1 (Version None)
Quarter: 2007Q2

REPORT INFORMATION
  Report Type: 
  Country: None (occurrence: None)
  Receive Date: 20070511
  Receipt Date: 20070504
  Transmission Date: 20071010
  Serious: Yes (Death, Other)
  Sender: FDA-Public Use
  Company Number: 163-20785-07041028

PATIENT
  Age: 74 Year
  Sex: Male

DRUGS (1)
  1. THALOMID [Suspect]
     Indication: MULTIPLE MYELOMA
     Dosage: 100 MG, QD, ORAL
     Route: 048
     Dates: start: 20070412

REACTIONS (2)
  - AMYLOIDOSIS [None]
  - HEPATIC FAILURE [None]
